FAERS Safety Report 18215479 (Version 1)
Quarter: 2020Q3

REPORT INFORMATION
  Report Type: Spontaneous
  Country: US (occurrence: US)
  Receive Date: 20200901
  Receipt Date: 20200901
  Transmission Date: 20201103
  Serious: No
  Sender: FDA-Public Use
  Company Number: US-ASTRAZENECA-2020SF07901

PATIENT
  Sex: Female

DRUGS (1)
  1. BEVESPI AEROSPHERE [Suspect]
     Active Substance: FORMOTEROL FUMARATE\GLYCOPYRROLATE
     Indication: CHRONIC OBSTRUCTIVE PULMONARY DISEASE
     Dosage: 9 MCG/4.8 MCG TWO PUFFS TWICE EACH DAY
     Route: 055

REACTIONS (7)
  - Asthma [Not Recovered/Not Resolved]
  - Drug ineffective [Not Recovered/Not Resolved]
  - Wrong technique in device usage process [Unknown]
  - Device issue [Unknown]
  - Incorrect dose administered by device [Unknown]
  - Device use issue [Unknown]
  - Intentional device misuse [Not Recovered/Not Resolved]
